FAERS Safety Report 17227557 (Version 2)
Quarter: 2020Q3

REPORT INFORMATION
  Report Type: Report from Study
  Country: US (occurrence: US)
  Receive Date: 20200103
  Receipt Date: 20200929
  Transmission Date: 20201102
  Serious: Yes (Death, Hospitalization)
  Sender: FDA-Public Use
  Company Number: NVSC2019US083988

PATIENT
  Age: 75 Year
  Weight: 73 kg

DRUGS (1)
  1. LAMPRENE [Suspect]
     Active Substance: CLOFAZIMINE
     Indication: MYCOBACTERIUM ABSCESSUS INFECTION
     Dosage: 100 MG, QD
     Route: 048
     Dates: start: 20180413

REACTIONS (3)
  - Acute respiratory failure [Fatal]
  - Restrictive pulmonary disease [Fatal]
  - Dyspnoea [Fatal]

NARRATIVE: CASE EVENT DATE: 20191225
